FAERS Safety Report 13854887 (Version 1)
Quarter: 2017Q3

REPORT INFORMATION
  Report Type: Spontaneous
  Country: GB (occurrence: GB)
  Receive Date: 20170809
  Receipt Date: 20170809
  Transmission Date: 20171127
  Serious: Yes (Other)
  Sender: FDA-Public Use
  Company Number: GB-MICRO LABS LIMITED-BB2017-01141

PATIENT
  Age: 63 Year
  Sex: Male
  Weight: 92.07 kg

DRUGS (3)
  1. BISOPROLOL FUMARATE. [Concomitant]
     Active Substance: BISOPROLOL FUMARATE
     Indication: PRODUCT USED FOR UNKNOWN INDICATION
     Route: 065
  2. LOSARTAN. [Suspect]
     Active Substance: LOSARTAN
     Indication: MYOCARDIAL INFARCTION
     Route: 048
     Dates: end: 20150515
  3. LOSARTAN. [Suspect]
     Active Substance: LOSARTAN
     Indication: MYOCARDIAL INFARCTION
     Route: 048
     Dates: start: 20101015

REACTIONS (2)
  - Balance disorder [Recovered/Resolved]
  - Amnesia [Recovered/Resolved]
